FAERS Safety Report 25544188 (Version 1)
Quarter: 2025Q3

REPORT INFORMATION
  Report Type: Spontaneous
  Country: US (occurrence: US)
  Receive Date: 20250711
  Receipt Date: 20250711
  Transmission Date: 20251021
  Serious: Yes (Hospitalization, Other)
  Sender: PFIZER
  Company Number: US-PFIZER INC-202500138100

PATIENT
  Age: 59 Year
  Sex: Male
  Weight: 91.17 kg

DRUGS (1)
  1. BOSULIF [Suspect]
     Active Substance: BOSUTINIB MONOHYDRATE
     Indication: Leukaemia
     Dosage: 1 TABLET DAILY, 400MG
     Route: 048

REACTIONS (2)
  - Aortitis [Unknown]
  - Accident [Unknown]

NARRATIVE: CASE EVENT DATE: 20240702
